FAERS Safety Report 16766131 (Version 1)
Quarter: 2019Q4

REPORT INFORMATION
  Report Type: Spontaneous
  Country: US (occurrence: US)
  Receive Date: 20190830
  Receipt Date: 20190830
  Transmission Date: 20200122
  Serious: Yes (Other)
  Sender: FDA-Public Use
  Company Number: None

PATIENT
  Age: 38 Year
  Sex: Female
  Weight: 58.97 kg

DRUGS (5)
  1. MULTI VITAMIN [Concomitant]
     Active Substance: VITAMINS
  2. LILETTA [Suspect]
     Active Substance: LEVONORGESTREL
     Dates: start: 20190319, end: 20190819
  3. OGESTREL [Concomitant]
     Active Substance: ETHINYL ESTRADIOL\NORGESTREL
  4. MAGNESIUM [Concomitant]
     Active Substance: MAGNESIUM
  5. ZINC. [Concomitant]
     Active Substance: ZINC

REACTIONS (18)
  - Arthralgia [None]
  - Depressed level of consciousness [None]
  - Haemorrhage [None]
  - Anxiety [None]
  - Chest pain [None]
  - Palpitations [None]
  - Hypoaesthesia [None]
  - Musculoskeletal pain [None]
  - Fatigue [None]
  - Headache [None]
  - Nausea [None]
  - Furuncle [None]
  - Night sweats [None]
  - Panic attack [None]
  - Feeling jittery [None]
  - Pain [None]
  - Lymphadenopathy [None]
  - White blood cell count increased [None]

NARRATIVE: CASE EVENT DATE: 20190806
